FAERS Safety Report 11234703 (Version 1)
Quarter: 2015Q3

REPORT INFORMATION
  Report Type: Spontaneous
  Country: IT (occurrence: IT)
  Receive Date: 20150702
  Receipt Date: 20150702
  Transmission Date: 20151125
  Serious: Yes (Other)
  Sender: FDA-Public Use
  Company Number: IT-BAYER-2015-257893

PATIENT
  Age: 50 Year
  Sex: Male

DRUGS (1)
  1. ASPIRINA [Suspect]
     Active Substance: ASPIRIN
     Dosage: 500 MG, ONCE
     Route: 048
     Dates: start: 20140801, end: 20140801

REACTIONS (3)
  - Urticaria [Recovering/Resolving]
  - Eyelid oedema [Recovering/Resolving]
  - Retching [Recovering/Resolving]

NARRATIVE: CASE EVENT DATE: 20140801
